FAERS Safety Report 15732434 (Version 1)
Quarter: 2018Q4

REPORT INFORMATION
  Report Type: Spontaneous
  Country: US (occurrence: US)
  Receive Date: 20181217
  Receipt Date: 20181217
  Transmission Date: 20190205
  Serious: Yes (Hospitalization, Disabling)
  Sender: FDA-Public Use
  Company Number: None

PATIENT
  Age: 39 Year
  Sex: Male
  Weight: 132.75 kg

DRUGS (8)
  1. VITAMIN D3 [Concomitant]
     Active Substance: CHOLECALCIFEROL
  2. GABAPENTIN. [Concomitant]
     Active Substance: GABAPENTIN
  3. CPAP [Concomitant]
     Active Substance: DEVICE
  4. LEVAQUIN [Suspect]
     Active Substance: LEVOFLOXACIN
     Indication: PATHOGEN RESISTANCE
     Dates: start: 20170417, end: 20170515
  5. COLLAGEN [Concomitant]
     Active Substance: COLLAGEN
  6. L-TYROSINE [Concomitant]
     Active Substance: TYROSINE
  7. B VITAMINS [Concomitant]
     Active Substance: CYANOCOBALAMIN\DEXPANTHENOL\NIACINAMIDE\PYRIDOXINE HYDROCHLORIDE\RIBOFLAVIN 5^-PHOSPHATE SODIUM\THIAMINE HYDROCHLORIDE\VITAMIN B COMPLEX
  8. LOW DOSE NALTREXONE [Concomitant]
     Active Substance: NALTREXONE

REACTIONS (9)
  - Tendon rupture [None]
  - Feeling cold [None]
  - Rash generalised [None]
  - Pain [None]
  - Decreased activity [None]
  - Hyperaesthesia [None]
  - Sensory level abnormal [None]
  - Arthralgia [None]
  - Gait inability [None]
